FAERS Safety Report 7387991-4 (Version None)
Quarter: 2011Q2

REPORT INFORMATION
  Report Type: 
  Country: None (occurrence: None)
  Receive Date: 20110401
  Receipt Date: 20110321
  Transmission Date: 20111010
  Serious: Yes (Other)
  Sender: FDA-Public Use
  Company Number: CL-RANBAXY-2011RR-43038

PATIENT
  Age: 75 Year
  Sex: Female

DRUGS (1)
  1. SERTRALINE HYDROCHLORIDE [Suspect]
     Dosage: 50 MG, UNK

REACTIONS (9)
  - GAIT DISTURBANCE [None]
  - BLEPHAROSPASM [None]
  - MUSCLE RIGIDITY [None]
  - NEUROLEPTIC MALIGNANT SYNDROME [None]
  - BRUXISM [None]
  - DYSTONIA [None]
  - MUSCULOSKELETAL STIFFNESS [None]
  - DYSARTHRIA [None]
  - DYSPHAGIA [None]
